FAERS Safety Report 16306551 (Version 1)
Quarter: 2019Q2

REPORT INFORMATION
  Report Type: Spontaneous
  Country: NO (occurrence: NO)
  Receive Date: 20190513
  Receipt Date: 20190513
  Transmission Date: 20190711
  Serious: Yes (Disabling)
  Sender: FDA-Public Use
  Company Number: NO-OTSUKA-2019_017438

PATIENT
  Age: 29 Year
  Sex: Female
  Weight: 70 kg

DRUGS (2)
  1. ABILIFY MAINTENA [Suspect]
     Active Substance: ARIPIPRAZOLE
     Indication: PRODUCT USED FOR UNKNOWN INDICATION
     Dosage: 150 MG, QM
     Route: 030
  2. XEPLION [Concomitant]
     Active Substance: PALIPERIDONE PALMITATE
     Indication: PRODUCT USED FOR UNKNOWN INDICATION
     Dosage: UNK
     Route: 065

REACTIONS (6)
  - Prescribed underdose [Unknown]
  - Gait disturbance [Not Recovered/Not Resolved]
  - Dry mouth [Not Recovered/Not Resolved]
  - Muscle spasms [Not Recovered/Not Resolved]
  - Musculoskeletal stiffness [Not Recovered/Not Resolved]
  - Head discomfort [Not Recovered/Not Resolved]

NARRATIVE: CASE EVENT DATE: 20050113
